FAERS Safety Report 6937653-X (Version None)
Quarter: 2010Q3

REPORT INFORMATION
  Report Type: 
  Country: None (occurrence: None)
  Receive Date: 20100820
  Receipt Date: 20100820
  Transmission Date: 20110219
  Serious: Yes (Other)
  Sender: FDA-Public Use
  Company Number: None

PATIENT
  Sex: Male
  Weight: 83.4619 kg

DRUGS (1)
  1. CLONIDINE HCL [Suspect]
     Indication: HYPERTENSION
     Dosage: 0.2MG WEEKLY TRANSDERMAL
     Route: 062
     Dates: start: 20100718, end: 20100819

REACTIONS (4)
  - BLOOD PRESSURE FLUCTUATION [None]
  - HEADACHE [None]
  - PRODUCT ADHESION ISSUE [None]
  - PRODUCT SUBSTITUTION ISSUE [None]
